FAERS Safety Report 5700433-7 (Version None)
Quarter: 2008Q2

REPORT INFORMATION
  Report Type: 
  Country: None (occurrence: None)
  Receive Date: 20080407
  Receipt Date: 20080327
  Transmission Date: 20081010
  Serious: Yes (Other)
  Sender: FDA-Public Use
  Company Number: 2008AP000765

PATIENT
  Age: 49 Year
  Sex: Female

DRUGS (5)
  1. CETIRIZINE HCL [Suspect]
     Indication: HYPERSENSITIVITY
     Dosage: 10 MG;QD;PO
     Route: 048
     Dates: start: 20080303, end: 20080326
  2. THYROID TAB [Concomitant]
  3. INSULIN [Concomitant]
  4. VITAMINS [Concomitant]
  5. CETIRIZINE HCL [Concomitant]

REACTIONS (3)
  - BLOOD GLUCOSE INCREASED [None]
  - DIZZINESS [None]
  - PHARMACEUTICAL PRODUCT COMPLAINT [None]
